FAERS Safety Report 12374838 (Version 1)
Quarter: 2016Q2

REPORT INFORMATION
  Report Type: Spontaneous
  Country: US (occurrence: None)
  Receive Date: 20160516
  Receipt Date: 20160516
  Transmission Date: 20160815
  Serious: Yes (Disabling)
  Sender: FDA-Public Use
  Company Number: None

PATIENT
  Age: 69 Year
  Sex: Female
  Weight: 65.77 kg

DRUGS (12)
  1. LIVALO [Suspect]
     Active Substance: PITAVASTATIN CALCIUM
     Indication: BLOOD CHOLESTEROL INCREASED
     Route: 048
  2. SYNTHROID [Concomitant]
     Active Substance: LEVOTHYROXINE SODIUM
  3. FISH OIL [Concomitant]
     Active Substance: FISH OIL
  4. CRESTOR [Suspect]
     Active Substance: ROSUVASTATIN CALCIUM
     Indication: BLOOD CHOLESTEROL INCREASED
     Route: 048
  5. ASPIRIN. [Concomitant]
     Active Substance: ASPIRIN
  6. MULTIVITAMIN [Concomitant]
     Active Substance: VITAMINS
  7. GLUCOSAMINE [Concomitant]
     Active Substance: GLUCOSAMINE
  8. COQ10 [Concomitant]
     Active Substance: UBIDECARENONE
  9. VITAMIN B [Concomitant]
     Active Substance: VITAMIN B
  10. ZETIA [Suspect]
     Active Substance: EZETIMIBE
  11. CALCIUM WITH VITAMIN D [Concomitant]
     Active Substance: CALCIUM\VITAMIN D
  12. CRESTOR [Suspect]
     Active Substance: ROSUVASTATIN CALCIUM
     Indication: LOW DENSITY LIPOPROTEIN INCREASED
     Route: 048

REACTIONS (9)
  - Myalgia [None]
  - Tendon rupture [None]
  - Gait disturbance [None]
  - Abdominal distension [None]
  - Muscular weakness [None]
  - Arthralgia [None]
  - Tendonitis [None]
  - Abdominal discomfort [None]
  - Flatulence [None]
